FAERS Safety Report 9157424 (Version 1)
Quarter: 2013Q1

REPORT INFORMATION
  Report Type: Spontaneous
  Country: US (occurrence: None)
  Receive Date: 20130308
  Receipt Date: 20130308
  Transmission Date: 20140127
  Serious: Yes (Other)
  Sender: FDA-Public Use
  Company Number: None

PATIENT
  Age: 71 Year
  Sex: Female
  Weight: 68.04 kg

DRUGS (1)
  1. LEXAPRO / FOREST PHARMACE [Suspect]
     Indication: ANXIETY DISORDER
     Dosage: TOOK 1/2 TAB  20 MG  1X DAY
     Dates: start: 20130213

REACTIONS (12)
  - Feeling hot [None]
  - Paraesthesia [None]
  - Dizziness [None]
  - Nausea [None]
  - Headache [None]
  - Musculoskeletal stiffness [None]
  - Musculoskeletal stiffness [None]
  - Asthenia [None]
  - Anxiety [None]
  - Blood pressure increased [None]
  - Heart rate abnormal [None]
  - Blood pressure fluctuation [None]
